FAERS Safety Report 7295641-0 (Version None)
Quarter: 2011Q1

REPORT INFORMATION
  Report Type: 
  Country: None (occurrence: None)
  Receive Date: 20110216
  Receipt Date: 20101207
  Transmission Date: 20110831
  Serious: No
  Sender: FDA-Public Use
  Company Number: US-ABBOTT-10P-163-0690545-00

PATIENT
  Age: 71 Year
  Sex: Male
  Weight: 82.628 kg

DRUGS (3)
  1. SIMCOR [Suspect]
     Dosage: 1000/40 MG AT BEDTIME
     Route: 048
  2. SIMCOR [Suspect]
     Indication: BLOOD CHOLESTEROL INCREASED
     Dosage: 500/20 MG AT BEDTIME
     Route: 048
  3. ASPIRIN [Concomitant]
     Indication: PRODUCT USED FOR UNKNOWN INDICATION
     Dosage: IN AM
     Route: 048

REACTIONS (3)
  - PARAESTHESIA [None]
  - FEELING HOT [None]
  - FLUSHING [None]
